FAERS Safety Report 19246493 (Version 1)
Quarter: 2021Q2

REPORT INFORMATION
  Report Type: Not Available
  Country: None (occurrence: None)
  Receive Date: 20210512
  Receipt Date: 20210512
  Transmission Date: 20210717
  Serious: No
  Sender: FDA-Public Use
  Company Number: US-AKORN-165877

PATIENT
  Age: 90 Year
  Sex: Female

DRUGS (1)
  1. COSOPT PF [Suspect]
     Active Substance: DORZOLAMIDE HYDROCHLORIDE\TIMOLOL MALEATE

REACTIONS (6)
  - Pruritus [None]
  - Ocular hyperaemia [None]
  - Skin exfoliation [Not Recovered/Not Resolved]
  - Eye pruritus [None]
  - Eye irritation [None]
  - Skin burning sensation [None]
